FAERS Safety Report 10507040 (Version 1)
Quarter: 2014Q4

REPORT INFORMATION
  Report Type: Spontaneous
  Country: US (occurrence: None)
  Receive Date: 20141008
  Receipt Date: 20141008
  Transmission Date: 20150528
  Serious: No
  Sender: FDA-Public Use
  Company Number: None

PATIENT
  Age: 47 Year
  Sex: Female

DRUGS (1)
  1. TASIGNA [Suspect]
     Active Substance: NILOTINIB
     Indication: CHRONIC MYELOID LEUKAEMIA
     Dosage: 400 MG EVERY 12 HOURS ORALLY
     Route: 048
     Dates: start: 20120907

REACTIONS (4)
  - Fatigue [None]
  - Feeling abnormal [None]
  - Anxiety [None]
  - Hyperhidrosis [None]
